FAERS Safety Report 8971412 (Version 1)
Quarter: 2012Q4

REPORT INFORMATION
  Report Type: 
  Country: FR (occurrence: FR)
  Receive Date: 20121218
  Receipt Date: 20121218
  Transmission Date: 20130627
  Serious: Yes (Life-Threatening, Hospitalization)
  Sender: FDA-Public Use
  Company Number: FR-009507513-1102FRA00062

PATIENT
  Age: 55 Year
  Sex: Male

DRUGS (13)
  1. JANUVIA [Suspect]
     Indication: TYPE 2 DIABETES MELLITUS
     Route: 048
     Dates: start: 20101222, end: 20110102
  2. AUGMENTIN [Suspect]
     Indication: INFECTION
     Dosage: 1 g, tid
     Route: 042
     Dates: start: 20101229, end: 20101231
  3. OFLOCET [Suspect]
     Indication: INFECTION
     Dosage: 200 mg, bid
     Route: 042
     Dates: start: 20101229, end: 20101231
  4. XATRAL [Suspect]
     Dosage: 10 mg, qd
     Route: 048
     Dates: start: 20101222, end: 20110104
  5. LOVENOX [Suspect]
     Indication: THROMBOSIS PROPHYLAXIS
     Dosage: 6000 IU, qd
     Route: 058
     Dates: start: 201009, end: 20110131
  6. NOVO-NORM [Suspect]
     Indication: TYPE 2 DIABETES MELLITUS
     Dosage: 5 mg, qd
     Route: 048
     Dates: end: 20110102
  7. ATARAX (HYDROXYZINE HYDROCHLORIDE) [Suspect]
     Route: 048
     Dates: end: 20110101
  8. XANAX [Suspect]
     Dosage: UNK mg, UNK
     Route: 048
     Dates: start: 20101222, end: 20110105
  9. DEPAMIDE [Suspect]
     Dosage: UNK mg, UNK
     Route: 048
     Dates: start: 20101222, end: 20110106
  10. TAHOR [Concomitant]
     Route: 048
  11. LASILIX [Concomitant]
     Route: 048
  12. INIPOMP [Concomitant]
     Dosage: UNK mg, UNK
     Route: 048
  13. LEVEMIR [Concomitant]
     Route: 058

REACTIONS (3)
  - Thrombocytopenia [Recovered/Resolved]
  - Infection [None]
  - Purpura [None]
